FAERS Safety Report 9154067 (Version 1)
Quarter: 2013Q1

REPORT INFORMATION
  Report Type: Spontaneous
  Country: CA (occurrence: CA)
  Receive Date: 20130311
  Receipt Date: 20130311
  Transmission Date: 20140127
  Serious: Yes (Death)
  Sender: FDA-Public Use
  Company Number: CA-PFIZER INC-2013080701

PATIENT
  Sex: 0

DRUGS (1)
  1. XALKORI [Suspect]
     Dosage: 250 MG, UNK

REACTIONS (1)
  - Death [Fatal]
